FAERS Safety Report 16449311 (Version 1)
Quarter: 2019Q2

REPORT INFORMATION
  Report Type: Spontaneous
  Country: HR (occurrence: HR)
  Receive Date: 20190619
  Receipt Date: 20190619
  Transmission Date: 20190711
  Serious: Yes (Other)
  Sender: FDA-Public Use
  Company Number: HR-UCBSA-2019025180

PATIENT
  Age: 28 Year
  Sex: Male
  Weight: 80 kg

DRUGS (1)
  1. CIMZIA [Suspect]
     Active Substance: CERTOLIZUMAB PEGOL
     Indication: PSORIATIC ARTHROPATHY
     Dosage: 400 MILLIGRAM, MONTHLY (QM)
     Route: 058
     Dates: start: 20180807, end: 20190416

REACTIONS (4)
  - Psoriasis [Recovering/Resolving]
  - Drug ineffective [Unknown]
  - Nail disorder [Recovering/Resolving]
  - Sacroiliitis [Recovering/Resolving]

NARRATIVE: CASE EVENT DATE: 20190101
